FAERS Safety Report 7422145-4 (Version None)
Quarter: 2011Q2

REPORT INFORMATION
  Report Type: 
  Country: None (occurrence: None)
  Receive Date: 20110418
  Receipt Date: 20101213
  Transmission Date: 20111010
  Serious: Yes (Other)
  Sender: FDA-Public Use
  Company Number: US-BAYER-201027814NA

PATIENT
  Age: 21 Year
  Sex: Female
  Weight: 118.18 kg

DRUGS (6)
  1. YASMIN [Suspect]
     Route: 048
     Dates: start: 20060111, end: 20060412
  2. PROVENTIL [Concomitant]
  3. YASMIN [Suspect]
     Indication: CONTRACEPTION
     Route: 048
     Dates: start: 20070424, end: 20080909
  4. PAXIL [Concomitant]
     Dosage: 10 MG (DAILY DOSE), QD,
  5. OCELLA [Suspect]
     Indication: CONTRACEPTION
     Dosage: UNK
     Route: 048
     Dates: start: 20080909
  6. YAZ [Suspect]
     Indication: CONTRACEPTION
     Dates: start: 20080404

REACTIONS (4)
  - CHOLELITHIASIS [None]
  - CHOLECYSTITIS CHRONIC [None]
  - ABDOMINAL PAIN UPPER [None]
  - VOMITING [None]
